FAERS Safety Report 13078795 (Version 1)
Quarter: 2017Q1

REPORT INFORMATION
  Report Type: Spontaneous
  Country: FR (occurrence: FR)
  Receive Date: 20170102
  Receipt Date: 20170102
  Transmission Date: 20170428
  Serious: Yes (Hospitalization)
  Sender: FDA-Public Use
  Company Number: FR-TEVA-723205ROM

PATIENT
  Age: 17 Year
  Sex: Male

DRUGS (8)
  1. ATARAX [Suspect]
     Active Substance: HYDROXYZINE HYDROCHLORIDE
     Indication: SUICIDE ATTEMPT
     Route: 048
     Dates: start: 20160614, end: 20160615
  2. LEVOTHYROX [Suspect]
     Active Substance: LEVOTHYROXINE
     Indication: SUICIDE ATTEMPT
     Route: 065
     Dates: start: 20160614, end: 20160615
  3. CLINDAMYCIN. [Suspect]
     Active Substance: CLINDAMYCIN
     Indication: SUICIDE ATTEMPT
     Route: 048
     Dates: start: 20160614, end: 20160615
  4. PREDNISOLONE. [Suspect]
     Active Substance: PREDNISOLONE
     Dates: start: 20160615, end: 20160615
  5. TIORFAN [Suspect]
     Active Substance: RACECADOTRIL
     Indication: SUICIDE ATTEMPT
     Route: 048
     Dates: start: 20160614, end: 20160615
  6. VOGALENE [Suspect]
     Active Substance: METOPIMAZINE
     Indication: SUICIDE ATTEMPT
     Route: 065
     Dates: start: 20160614, end: 20160615
  7. PREDNISOLONE. [Suspect]
     Active Substance: PREDNISOLONE
     Indication: SUICIDE ATTEMPT
     Route: 065
     Dates: start: 20160614, end: 20160614
  8. PARACETAMOL [Suspect]
     Active Substance: ACETAMINOPHEN
     Indication: SUICIDE ATTEMPT
     Route: 065
     Dates: start: 20160614, end: 20160614

REACTIONS (6)
  - Drug level increased [Recovered/Resolved]
  - Tachycardia [Recovered/Resolved]
  - Chest discomfort [Recovered/Resolved]
  - Toxicity to various agents [Recovered/Resolved]
  - Dysarthria [Recovered/Resolved]
  - Somatic symptom disorder [Recovered/Resolved]

NARRATIVE: CASE EVENT DATE: 20160614
